FAERS Safety Report 4897644-X (Version None)
Quarter: 2006Q1

REPORT INFORMATION
  Report Type: 
  Country: None (occurrence: None)
  Receive Date: 20060130
  Receipt Date: 20060130
  Transmission Date: 20060701
  Serious: Yes (Other)
  Sender: FDA-Public Use
  Company Number: None

PATIENT
  Age: 85 Year
  Sex: Female
  Weight: 65 kg

DRUGS (15)
  1. DETROL LA [Suspect]
  2. LEVOTHYROXINE SODIUM [Concomitant]
  3. TOLTERODINE [Concomitant]
  4. OMEPRAZOLE [Concomitant]
  5. FUROSEMIDE [Concomitant]
  6. LISINOPRIL [Concomitant]
  7. CITALOPRAM HYDROBROMIDE [Concomitant]
  8. PHENYTOIN EXT REL [Concomitant]
  9. TRAZODONE [Concomitant]
  10. DILTIAZEM HCL [Concomitant]
  11. METOPROLOL TARTRATE [Concomitant]
  12. ASPIRIN [Concomitant]
  13. MILK OF MAGNESIA TAB [Concomitant]
  14. FERROUS SULFATE TAB [Concomitant]
  15. ACETAMINOPHEN [Concomitant]

REACTIONS (2)
  - NAUSEA [None]
  - VOMITING [None]
